FAERS Safety Report 13641461 (Version 1)
Quarter: 2017Q2

REPORT INFORMATION
  Report Type: Spontaneous
  Country: US (occurrence: US)
  Receive Date: 20170612
  Receipt Date: 20170612
  Transmission Date: 20170830
  Serious: Yes (Life-Threatening, Hospitalization, Other)
  Sender: FDA-Public Use
  Company Number: US-AUROBINDO-AUR-APL-2017-35149

PATIENT
  Age: 40 Year
  Sex: Female

DRUGS (4)
  1. CLOZAPINE 25MG [Suspect]
     Active Substance: CLOZAPINE
     Indication: TARDIVE DYSKINESIA
     Dosage: 150 MG, TWO TIMES A DAY
     Route: 065
  2. CLOZAPINE 25MG [Suspect]
     Active Substance: CLOZAPINE
     Dosage: 275 MG, DIVDED DOSES
     Route: 065
  3. QUETIAPINE. [Concomitant]
     Active Substance: QUETIAPINE
     Indication: PSYCHOTIC DISORDER
     Dosage: UNK
     Route: 065
  4. CLOZAPINE 25MG [Suspect]
     Active Substance: CLOZAPINE
     Indication: PSYCHOTIC DISORDER
     Dosage: 25 MG, ONCE A DAY
     Route: 065

REACTIONS (1)
  - Atrial flutter [Recovered/Resolved]
